FAERS Safety Report 7019588-X (Version None)
Quarter: 2010Q3

REPORT INFORMATION
  Report Type: 
  Country: None (occurrence: None)
  Receive Date: 20100928
  Receipt Date: 20100928
  Transmission Date: 20110219
  Serious: Yes (Hospitalization)
  Sender: FDA-Public Use
  Company Number: None

PATIENT
  Sex: Female
  Weight: 70 kg

DRUGS (2)
  1. CISPLATIN [Suspect]
     Dosage: 130 MG
     Dates: end: 20100831
  2. ETOPOSIDE [Suspect]
     Dosage: 525 MG
     Dates: end: 20100902

REACTIONS (4)
  - BACTERAEMIA [None]
  - DEHYDRATION [None]
  - ESCHERICHIA TEST POSITIVE [None]
  - URINARY TRACT INFECTION [None]
